FAERS Safety Report 8037917-5 (Version None)
Quarter: 2012Q1

REPORT INFORMATION
  Report Type: 
  Country: None (occurrence: None)
  Receive Date: 20120111
  Receipt Date: 20120105
  Transmission Date: 20120608
  Serious: Yes (Other)
  Sender: FDA-Public Use
  Company Number: CHPA2011JP018741

PATIENT
  Sex: Male

DRUGS (1)
  1. PURSENNID [Suspect]
     Dosage: UNK, UNK
     Route: 048

REACTIONS (2)
  - LIVER DISORDER [None]
  - CHROMATURIA [None]
